FAERS Safety Report 23202391 (Version 1)
Quarter: 2023Q4

REPORT INFORMATION
  Report Type: Spontaneous
  Country: CN (occurrence: CN)
  Receive Date: 20231120
  Receipt Date: 20231120
  Transmission Date: 20240110
  Serious: Yes (Other)
  Sender: FDA-Public Use
  Company Number: CN-BoehringerIngelheim-2023-BI-273384

PATIENT
  Age: 52 Year
  Sex: Female
  Weight: 55.0 kg

DRUGS (3)
  1. MOBIC [Suspect]
     Active Substance: MELOXICAM
     Indication: Arthritis
     Route: 048
     Dates: start: 20231107, end: 20231109
  2. GLUCOSAMINE HYDROCHLORIDE [Suspect]
     Active Substance: GLUCOSAMINE HYDROCHLORIDE
     Indication: Arthritis
     Route: 048
     Dates: start: 20231107, end: 20231109
  3. Panlongqi Tablets [Concomitant]
     Indication: Arthritis
     Route: 048
     Dates: start: 20231107, end: 20231109

REACTIONS (3)
  - Pruritus [Recovering/Resolving]
  - Dermatitis allergic [Recovering/Resolving]
  - Off label use [Unknown]

NARRATIVE: CASE EVENT DATE: 20231109
